FAERS Safety Report 18501549 (Version 1)
Quarter: 2020Q4

REPORT INFORMATION
  Report Type: Spontaneous
  Country: US (occurrence: US)
  Receive Date: 20201113
  Receipt Date: 20201113
  Transmission Date: 20210114
  Serious: Yes (Hospitalization)
  Sender: FDA-Public Use
  Company Number: US-009507513-2011USA002516

PATIENT
  Age: 67 Year
  Sex: Male
  Weight: 98.9 kg

DRUGS (4)
  1. NEXIUM [Suspect]
     Active Substance: ESOMEPRAZOLE MAGNESIUM
     Indication: GASTROOESOPHAGEAL REFLUX DISEASE
     Dosage: 40 MILLIGRAM, QD
     Route: 048
  2. OMEPRAZOLE. [Suspect]
     Active Substance: OMEPRAZOLE
     Indication: GASTROOESOPHAGEAL REFLUX DISEASE
     Dosage: DAILY, GENERIC
     Route: 048
     Dates: start: 2004
  3. PRINIVIL [Suspect]
     Active Substance: LISINOPRIL
     Indication: HYPERTENSION
     Dosage: 10 MILLIGRAM, QD
     Route: 048
     Dates: start: 2004, end: 20180301
  4. PRINIVIL [Suspect]
     Active Substance: LISINOPRIL
     Dosage: 25 MILLIGRAM, QD
     Route: 048
     Dates: start: 20180302

REACTIONS (5)
  - Swollen tongue [Recovered/Resolved]
  - Coronary artery occlusion [Unknown]
  - Cough [Not Recovered/Not Resolved]
  - Tremor [Recovered/Resolved]
  - Therapy cessation [Unknown]
